FAERS Safety Report 13751326 (Version 1)
Quarter: 2017Q3

REPORT INFORMATION
  Report Type: Spontaneous
  Country: US (occurrence: US)
  Receive Date: 20170713
  Receipt Date: 20170713
  Transmission Date: 20171127
  Serious: No
  Sender: FDA-Public Use
  Company Number: US-ASTELLAS-2017US014952

PATIENT
  Age: 64 Year
  Sex: Female

DRUGS (3)
  1. TOLTERODINE [Suspect]
     Active Substance: TOLTERODINE
     Indication: HYPERTONIC BLADDER
     Dosage: UNK UNK, UNKNOWN FREQ.
     Route: 065
     Dates: start: 20161229, end: 201702
  2. MYRBETRIQ [Suspect]
     Active Substance: MIRABEGRON
     Indication: HYPERTONIC BLADDER
     Route: 048
     Dates: start: 201702, end: 201703
  3. PYRIDIUM [Concomitant]
     Active Substance: PHENAZOPYRIDINE
     Indication: PRODUCT USED FOR UNKNOWN INDICATION
     Dosage: UNK UNK, UNKNOWN FREQ.
     Route: 065

REACTIONS (6)
  - Abdominal pain [Recovered/Resolved]
  - Drug ineffective [Unknown]
  - Abdominal rigidity [Recovered/Resolved]
  - Pharyngitis [Recovered/Resolved]
  - Intentional product misuse [Unknown]
  - Dry throat [Recovered/Resolved]

NARRATIVE: CASE EVENT DATE: 201702
